FAERS Safety Report 9972406 (Version 1)
Quarter: 2014Q1

REPORT INFORMATION
  Report Type: Spontaneous
  Country: US (occurrence: None)
  Receive Date: 20140305
  Receipt Date: 20140305
  Transmission Date: 20141002
  Serious: Yes (Life-Threatening, Hospitalization)
  Sender: FDA-Public Use
  Company Number: None

PATIENT
  Age: 73 Year
  Sex: Male

DRUGS (7)
  1. APIXABAN [Suspect]
     Indication: ATRIAL FIBRILLATION
     Dosage: 1 PILL, BID, ORAL
     Route: 048
     Dates: start: 20131001, end: 20140206
  2. ASPIRIN [Concomitant]
  3. METOPROLOL SUCCINATE [Concomitant]
  4. VALSARTAN HYDROCHLOROTHIAZIDE [Concomitant]
  5. VYTORIN [Concomitant]
  6. TERAZOSIN [Concomitant]
  7. PRILOSEC [Concomitant]

REACTIONS (1)
  - Deep vein thrombosis [None]
